FAERS Safety Report 6408870-2 (Version None)
Quarter: 2009Q4

REPORT INFORMATION
  Report Type: 
  Country: None (occurrence: None)
  Receive Date: 20091021
  Receipt Date: 20091012
  Transmission Date: 20100525
  Serious: Yes (Hospitalization)
  Sender: FDA-Public Use
  Company Number: FR-JNJFOC-20090905919

PATIENT
  Age: 22 Year
  Sex: Female
  Weight: 53 kg

DRUGS (14)
  1. INFLIXIMAB [Suspect]
     Route: 042
     Dates: start: 20070824, end: 20090707
  2. INFLIXIMAB [Suspect]
     Route: 042
     Dates: start: 20070824, end: 20090707
  3. INFLIXIMAB [Suspect]
     Route: 042
     Dates: start: 20070824, end: 20090707
  4. INFLIXIMAB [Suspect]
     Route: 042
     Dates: start: 20070824, end: 20090707
  5. INFLIXIMAB [Suspect]
     Route: 042
     Dates: start: 20070824, end: 20090707
  6. INFLIXIMAB [Suspect]
     Route: 042
     Dates: start: 20070824, end: 20090707
  7. INFLIXIMAB [Suspect]
     Route: 042
     Dates: start: 20070824, end: 20090707
  8. INFLIXIMAB [Suspect]
     Route: 042
     Dates: start: 20070824, end: 20090707
  9. INFLIXIMAB [Suspect]
     Route: 042
     Dates: start: 20070824, end: 20090707
  10. INFLIXIMAB [Suspect]
     Route: 042
     Dates: start: 20070824, end: 20090707
  11. INFLIXIMAB [Suspect]
     Route: 042
     Dates: start: 20070824, end: 20090707
  12. INFLIXIMAB [Suspect]
     Route: 042
     Dates: start: 20070824, end: 20090707
  13. INFLIXIMAB [Suspect]
     Route: 042
     Dates: start: 20070824, end: 20090707
  14. INFLIXIMAB [Suspect]
     Indication: CROHN'S DISEASE
     Route: 042
     Dates: start: 20070824, end: 20090707

REACTIONS (1)
  - DERMATITIS BULLOUS [None]
